FAERS Safety Report 8781392 (Version 1)
Quarter: 2012Q4

REPORT INFORMATION
  Report Type: 
  Country: US (occurrence: US)
  Receive Date: 20120913
  Receipt Date: 20120913
  Transmission Date: 20130627
  Serious: Yes (Other)
  Sender: FDA-Public Use
  Company Number: US-VERTEX PHARMACEUTICAL INC.-AE-2012-007038

PATIENT
  Sex: Female
  Weight: 96.18 kg

DRUGS (7)
  1. INCIVEK [Suspect]
     Indication: HEPATITIS C
     Route: 048
     Dates: start: 20120331
  2. PEGASYS [Concomitant]
     Indication: HEPATITIS C
     Route: 058
     Dates: start: 20120331
  3. RIBAPAK [Concomitant]
     Indication: HEPATITIS C
     Dates: start: 20120331
  4. HUMULIN N [Concomitant]
  5. HUMULIN R [Concomitant]
  6. NORCO [Concomitant]
  7. PRILOSEC [Concomitant]

REACTIONS (1)
  - Anaemia [Unknown]
